FAERS Safety Report 19154773 (Version 1)
Quarter: 2021Q2

REPORT INFORMATION
  Report Type: Report from Study
  Country: FR (occurrence: FR)
  Receive Date: 20210419
  Receipt Date: 20210419
  Transmission Date: 20210717
  Serious: Yes (Death, Life-Threatening, Hospitalization)
  Sender: FDA-Public Use
  Company Number: FR-ASTRAZENECA-2021A219848

PATIENT
  Age: 893 Month
  Sex: Female

DRUGS (2)
  1. DURVALUMAB. [Suspect]
     Active Substance: DURVALUMAB
     Indication: METASTASES TO BILIARY TRACT
     Route: 042
     Dates: start: 20201229
  2. TREMELIMUMAB. [Suspect]
     Active Substance: TREMELIMUMAB
     Indication: METASTASES TO BILIARY TRACT
     Route: 042
     Dates: start: 20201229

REACTIONS (3)
  - Sepsis [Recovered/Resolved with Sequelae]
  - Abdominal pain [Not Recovered/Not Resolved]
  - Liver abscess [Fatal]

NARRATIVE: CASE EVENT DATE: 20210310
